FAERS Safety Report 9157734 (Version 1)
Quarter: 2013Q1

REPORT INFORMATION
  Report Type: Spontaneous
  Country: IT (occurrence: None)
  Receive Date: 20130212
  Receipt Date: 20130212
  Transmission Date: 20140127
  Serious: Yes (Hospitalization)
  Sender: FDA-Public Use
  Company Number: AUR-APL-2013-01157

PATIENT
  Age: 31 Year
  Sex: Male

DRUGS (1)
  1. AMOXICILLIN (AMOXICILLIN) [Suspect]
     Indication: CELLULITIS
     Dosage: 1 DOSE UNIT/TOTAL
     Route: 048
     Dates: start: 20121003, end: 20121003

REACTIONS (2)
  - Vomiting [None]
  - Hyperhidrosis [None]
